FAERS Safety Report 24800518 (Version 2)
Quarter: 2025Q1

REPORT INFORMATION
  Report Type: Spontaneous
  Country: US (occurrence: US)
  Receive Date: 20250102
  Receipt Date: 20250120
  Transmission Date: 20250409
  Serious: No
  Sender: MERCK
  Company Number: US-009507513-2412USA007118

PATIENT
  Sex: Female
  Weight: 58.5 kg

DRUGS (22)
  1. WINREVAIR [Suspect]
     Active Substance: SOTATERCEPT-CSRK
     Indication: Product used for unknown indication
     Dates: start: 2024
  2. TYVASO DPI [Suspect]
     Active Substance: TREPROSTINIL
     Indication: Pulmonary arterial hypertension
     Dosage: 64 MICROGRAM, QID
     Dates: start: 20241112
  3. SIMVASTATIN [Concomitant]
     Active Substance: SIMVASTATIN
  4. FUROSEMIDE [Concomitant]
     Active Substance: FUROSEMIDE
  5. BUSPIRONE HCL [Concomitant]
     Active Substance: BUSPIRONE HYDROCHLORIDE
  6. ACETAMINOPHEN\DIPHENHYDRAMINE HYDROCHLORIDE [Concomitant]
     Active Substance: ACETAMINOPHEN\DIPHENHYDRAMINE HYDROCHLORIDE
  7. FLUOXETINE HYDROCHLORIDE [Concomitant]
     Active Substance: FLUOXETINE HYDROCHLORIDE
  8. VITAMIN D3 [Concomitant]
     Active Substance: CHOLECALCIFEROL
  9. TRAZODONE HCL [Concomitant]
     Active Substance: TRAZODONE HYDROCHLORIDE
  10. OPSUMIT [Concomitant]
     Active Substance: MACITENTAN
  11. LAMOTRIGINE [Concomitant]
     Active Substance: LAMOTRIGINE
  12. LORAZEPAM [Concomitant]
     Active Substance: LORAZEPAM
  13. CALCITRIOL [Concomitant]
     Active Substance: CALCITRIOL
  14. ARIPIPRAZOLE [Concomitant]
     Active Substance: ARIPIPRAZOLE
  15. SPIRIVA RESPIMAT [Concomitant]
     Active Substance: TIOTROPIUM BROMIDE
  16. ADCIRCA [Concomitant]
     Active Substance: TADALAFIL
  17. OXYGEN [Concomitant]
     Active Substance: OXYGEN
  18. OMEPRAZOLE [Concomitant]
     Active Substance: OMEPRAZOLE
  19. RECLAST [Concomitant]
     Active Substance: ZOLEDRONIC ACID
  20. CARVEDILOL [Concomitant]
     Active Substance: CARVEDILOL
  21. LOPERAMIDE [Concomitant]
     Active Substance: LOPERAMIDE
  22. SYMBICORT [Concomitant]
     Active Substance: BUDESONIDE\FORMOTEROL FUMARATE DIHYDRATE

REACTIONS (2)
  - Headache [Recovered/Resolved]
  - Nausea [Recovered/Resolved]

NARRATIVE: CASE EVENT DATE: 20240101
